FAERS Safety Report 9596920 (Version 1)
Quarter: 2013Q4

REPORT INFORMATION
  Report Type: Spontaneous
  Country: IR (occurrence: IR)
  Receive Date: 20131004
  Receipt Date: 20131004
  Transmission Date: 20140711
  Serious: Yes (Death, Hospitalization, Other)
  Sender: FDA-Public Use
  Company Number: IR-ACTAVIS-2013-17398

PATIENT
  Age: 27 Year
  Sex: Male

DRUGS (1)
  1. TRAMADOL (UNKNOWN) [Suspect]
     Indication: PRODUCT USED FOR UNKNOWN INDICATION
     Dosage: 1000 MG, SINGLE
     Route: 048

REACTIONS (9)
  - Coma [Fatal]
  - Convulsion [Fatal]
  - Myoclonus [Fatal]
  - Hyperthermia [Fatal]
  - Tachycardia [Fatal]
  - Blood creatinine increased [Fatal]
  - Blood creatine phosphokinase increased [Fatal]
  - White blood cell count increased [Fatal]
  - Overdose [Fatal]
